FAERS Safety Report 21928862 (Version 1)
Quarter: 2023Q1

REPORT INFORMATION
  Report Type: Spontaneous
  Country: US (occurrence: US)
  Receive Date: 20230131
  Receipt Date: 20230131
  Transmission Date: 20230418
  Serious: Yes (Hospitalization)
  Sender: FDA-Public Use
  Company Number: US-TEVA-2023-US-2849396

PATIENT
  Age: 14 Year
  Sex: Female

DRUGS (5)
  1. WARFARIN [Interacting]
     Active Substance: WARFARIN
     Indication: Anticoagulant therapy
     Dosage: WEEKLY DOSE OF 49 MG.
     Route: 065
  2. WARFARIN [Interacting]
     Active Substance: WARFARIN
     Dosage: WEEKLY DOSE OF 35 MG
     Route: 065
  3. NORETHINDRONE [Interacting]
     Active Substance: NORETHINDRONE
     Indication: Heavy menstrual bleeding
     Dosage: 10 MILLIGRAM DAILY; FOLLOWED BY A TAPER TO A NEW MAINTENANCE DOSE OF 15 MG DAILY
     Route: 065
  4. NORETHINDRONE [Interacting]
     Active Substance: NORETHINDRONE
     Dosage: 10 MG 4 TIMES DAILY FOR 4 DAYS
     Route: 065
  5. ASPIRIN [Concomitant]
     Active Substance: ASPIRIN
     Indication: Product used for unknown indication
     Route: 065

REACTIONS (1)
  - Drug interaction [Unknown]
